FAERS Safety Report 19661484 (Version 2)
Quarter: 2021Q3

REPORT INFORMATION
  Report Type: Spontaneous
  Country: AR (occurrence: AR)
  Receive Date: 20210805
  Receipt Date: 20210819
  Transmission Date: 20211014
  Serious: Yes (Other)
  Sender: FDA-Public Use
  Company Number: AR-PFIZER INC-2021783254

PATIENT
  Age: 12 Year
  Sex: Male

DRUGS (1)
  1. GENOTROPIN [Suspect]
     Active Substance: SOMATROPIN
     Indication: SHORT STATURE
     Dosage: 0.1 A 0.5 MG, 6 TIMES PER WEEK
     Dates: start: 20190219

REACTIONS (6)
  - Respiratory distress [Unknown]
  - Bronchospasm [Unknown]
  - Drug effect less than expected [Unknown]
  - Visual impairment [Unknown]
  - Asthenia [Unknown]
  - Hypersensitivity [Unknown]
